FAERS Safety Report 4553583-5 (Version None)
Quarter: 2004Q4

REPORT INFORMATION
  Report Type: 
  Country: None (occurrence: None)
  Receive Date: 20041227
  Receipt Date: 20041028
  Transmission Date: 20050328
  Serious: No
  Sender: FDA-Public Use
  Company Number: 04P-163-0279011-00

PATIENT
  Age: 55 Year
  Sex: Female
  Weight: 44.4525 kg

DRUGS (7)
  1. HUMIRA [Suspect]
     Indication: RHEUMATOID ARTHRITIS
     Dosage: 40 MG, 1 IN 1 WK, SUBCUTANEOUS
     Route: 058
     Dates: start: 20041020
  2. PROPACET 100 [Concomitant]
  3. GARLIC [Concomitant]
  4. MULTI-VITAMINS [Concomitant]
  5. CAYENNE PEPPER [Concomitant]
  6. PREDNISONE [Concomitant]
  7. AMLODIPINE BESYLATE [Concomitant]

REACTIONS (1)
  - DIZZINESS [None]
